FAERS Safety Report 7022021-5 (Version None)
Quarter: 2010Q3

REPORT INFORMATION
  Report Type: 
  Country: None (occurrence: None)
  Receive Date: 20100930
  Receipt Date: 20100924
  Transmission Date: 20110219
  Serious: Yes (Other)
  Sender: FDA-Public Use
  Company Number: NL-BAYER-201040641GPV

PATIENT
  Age: 9 Month
  Sex: Male

DRUGS (5)
  1. FLUDARABINE [Suspect]
     Indication: STEM CELL TRANSPLANT
  2. THIOTEPA [Suspect]
     Indication: STEM CELL TRANSPLANT
  3. THEOPHYLLINE [Suspect]
     Indication: STEM CELL TRANSPLANT
  4. ANTI-THYMOCYTE GLOBULIN NOS [Suspect]
     Indication: STEM CELL TRANSPLANT
  5. BUSULFAN [Suspect]
     Indication: STEM CELL TRANSPLANT

REACTIONS (3)
  - EPSTEIN-BARR VIRUS INFECTION [None]
  - TRANSPLANT REJECTION [None]
  - VENOOCCLUSIVE DISEASE [None]
